FAERS Safety Report 23968774 (Version 1)
Quarter: 2024Q2

REPORT INFORMATION
  Report Type: Spontaneous
  Country: US (occurrence: US)
  Receive Date: 20240612
  Receipt Date: 20240612
  Transmission Date: 20240715
  Serious: Yes (Hospitalization, Other)
  Sender: FDA-Public Use
  Company Number: US-ABBVIE-5786694

PATIENT
  Age: 35 Year
  Sex: Female
  Weight: 61 kg

DRUGS (1)
  1. CARBOXYMETHYLCELLULOSE SODIUM [Suspect]
     Active Substance: CARBOXYMETHYLCELLULOSE SODIUM
     Indication: Dry eye
     Dosage: TIME INTERVAL: 0.33333333 DAYS: FORM STRENGTH: 3 DROPS
     Route: 047
     Dates: start: 2023

REACTIONS (4)
  - Blindness unilateral [Recovered/Resolved]
  - Vision blurred [Not Recovered/Not Resolved]
  - Chemical burns of eye [Not Recovered/Not Resolved]
  - Eye irritation [Unknown]

NARRATIVE: CASE EVENT DATE: 20240601
